FAERS Safety Report 5397124-1 (Version None)
Quarter: 2007Q3

REPORT INFORMATION
  Report Type: 
  Country: None (occurrence: None)
  Receive Date: 20070725
  Receipt Date: 20070718
  Transmission Date: 20080115
  Serious: Yes (Other)
  Sender: FDA-Public Use
  Company Number: US-GENENTECH-243316

PATIENT
  Sex: Female
  Weight: 58.503 kg

DRUGS (9)
  1. XOLAIR [Suspect]
     Indication: ASTHMA
     Dosage: 150 MG, UNK
     Dates: start: 20050719
  2. BENADRYL [Concomitant]
     Indication: PREMEDICATION
  3. NEXIUM [Concomitant]
     Indication: DRUG USE FOR UNKNOWN INDICATION
     Dosage: 40 MG, QD
     Dates: start: 20040101
  4. ALBUTEROL [Concomitant]
     Indication: DRUG USE FOR UNKNOWN INDICATION
     Dosage: 2 PUFF, PRN
     Dates: start: 20040101
  5. FOSAMAX [Concomitant]
     Indication: DRUG USE FOR UNKNOWN INDICATION
     Dosage: 10 MG, QD
     Dates: start: 20040101
  6. ALLEGRA [Concomitant]
     Indication: DRUG USE FOR UNKNOWN INDICATION
     Dosage: 180 MG, QD
     Dates: start: 20040101
  7. ZOLOFT [Concomitant]
     Indication: DRUG USE FOR UNKNOWN INDICATION
     Dosage: 50 MG, QD
     Dates: start: 20040101
  8. ADVAIR DISKUS 100/50 [Concomitant]
     Indication: DRUG USE FOR UNKNOWN INDICATION
     Dosage: UNK, QD
     Dates: start: 20040101
  9. SINGULAIR [Concomitant]
     Indication: DRUG USE FOR UNKNOWN INDICATION
     Dosage: 10 MG, QD
     Dates: start: 20040101

REACTIONS (4)
  - COUGH [None]
  - DYSPNOEA [None]
  - PRURITUS [None]
  - RASH [None]
